FAERS Safety Report 17356387 (Version 5)
Quarter: 2025Q4

REPORT INFORMATION
  Report Type: Report from Study
  Country: US (occurrence: US)
  Receive Date: 20200131
  Receipt Date: 20251120
  Transmission Date: 20260117
  Serious: Yes (Hospitalization, Other)
  Sender: TAKEDA
  Company Number: US-SHIRE-US202003717

PATIENT
  Age: 80 Year
  Sex: Female

DRUGS (5)
  1. ICATIBANT [Suspect]
     Active Substance: ICATIBANT ACETATE
     Indication: Hereditary angioedema
     Dosage: 3 DOSAGE FORM
  2. ICATIBANT [Suspect]
     Active Substance: ICATIBANT ACETATE
     Dosage: 3 MILLILITER
  3. ICATIBANT [Suspect]
     Active Substance: ICATIBANT ACETATE
     Dosage: 3 MILLIGRAM
  4. ICATIBANT [Suspect]
     Active Substance: ICATIBANT ACETATE
     Dosage: 30 MILLIGRAM
  5. ICATIBANT [Suspect]
     Active Substance: ICATIBANT ACETATE
     Dosage: UNK

REACTIONS (8)
  - Dyspnoea [Unknown]
  - Cardiac failure congestive [Recovering/Resolving]
  - Gout [Recovered/Resolved]
  - Device related infection [Recovered/Resolved]
  - Respiratory disorder [Recovered/Resolved]
  - Device use error [Recovered/Resolved]
  - Infusion site discharge [Recovered/Resolved]
  - Cardiac disorder [Unknown]

NARRATIVE: CASE EVENT DATE: 20251110
